FAERS Safety Report 6647025-3 (Version None)
Quarter: 2010Q1

REPORT INFORMATION
  Report Type: 
  Country: None (occurrence: None)
  Receive Date: 20100323
  Receipt Date: 20100204
  Transmission Date: 20100710
  Serious: No
  Sender: FDA-Public Use
  Company Number: A0843004A

PATIENT
  Sex: Male

DRUGS (10)
  1. LAMICTAL XR [Suspect]
     Dosage: 150MG PER DAY
     Route: 048
     Dates: start: 20100114
  2. LAMOTRIGINE [Suspect]
     Dosage: 150MG VARIABLE DOSE
     Route: 048
     Dates: start: 20070101, end: 20100113
  3. METOPROLOL TARTRATE [Concomitant]
  4. LISINOPRIL [Concomitant]
  5. TRAZODONE HCL [Concomitant]
  6. CLONAZEPAM [Concomitant]
  7. FIBER LAXATIVE [Concomitant]
  8. MULTI-VITAMIN [Concomitant]
  9. MUCINEX [Concomitant]
  10. TYLENOL-500 [Concomitant]

REACTIONS (3)
  - PRURITUS [None]
  - RASH [None]
  - URTICARIA [None]
